FAERS Safety Report 4635077-1 (Version None)
Quarter: 2005Q2

REPORT INFORMATION
  Report Type: 
  Country: None (occurrence: None)
  Receive Date: 20050414
  Receipt Date: 20050406
  Transmission Date: 20051028
  Serious: Yes (Hospitalization)
  Sender: FDA-Public Use
  Company Number: FR-ROCHE-400895

PATIENT
  Age: 66 Year
  Sex: Male
  Weight: 67 kg

DRUGS (3)
  1. PEG-INTERFERON ALFA 2A (RO 25-8310) [Suspect]
     Route: 058
     Dates: start: 20040517, end: 20050322
  2. PARACETAMOL [Concomitant]
     Dates: start: 20040115
  3. ZOLPIDEM TARTRATE [Concomitant]
     Dates: start: 20050115

REACTIONS (1)
  - PULMONARY FIBROSIS [None]
